FAERS Safety Report 18731132 (Version 1)
Quarter: 2021Q1

REPORT INFORMATION
  Report Type: Report from Study
  Country: IT (occurrence: IT)
  Receive Date: 20210112
  Receipt Date: 20210112
  Transmission Date: 20210419
  Serious: Yes (Other)
  Sender: FDA-Public Use
  Company Number: IT-TEVA-2021-IT-1867153

PATIENT
  Age: 56 Year
  Sex: Female

DRUGS (8)
  1. ZARZIO 30 MU/0.5 ML SOLUTION FOR INJECTION OR INFUSION IN PRE?FILLED S [Concomitant]
     Active Substance: FILGRASTIM
     Indication: NEUTROPENIA
  2. CITALOPRAM [Concomitant]
     Active Substance: CITALOPRAM HYDROBROMIDE
     Indication: DEPRESSION
     Dates: start: 20180101
  3. PACLITAXEL TEVA ITALIA [Suspect]
     Active Substance: PACLITAXEL
     Indication: BREAST MASS
     Route: 065
     Dates: start: 20201015
  4. TRIMETON [Concomitant]
     Active Substance: CHLORPHENIRAMINE MALEATE
     Indication: ANTIALLERGIC THERAPY
  5. FAMOTIDINE. [Concomitant]
     Active Substance: FAMOTIDINE
     Indication: ANTACID THERAPY
  6. ONDANSETRON HYDROCHLORIDE. [Concomitant]
     Active Substance: ONDANSETRON HYDROCHLORIDE
     Indication: ANTIEMETIC SUPPORTIVE CARE
     Dosage: 8MG
  7. SONIREM [Concomitant]
     Active Substance: ZOLPIDEM TARTRATE
     Indication: SEDATIVE THERAPY
  8. DESAMETASONE [Concomitant]
     Active Substance: DEXAMETHASONE
     Indication: ANTIINFLAMMATORY THERAPY
     Dosage: 8MG

REACTIONS (6)
  - Dysgeusia [Recovering/Resolving]
  - Oral candidiasis [Recovering/Resolving]
  - Constipation [Recovering/Resolving]
  - Alopecia [Recovering/Resolving]
  - Dry mouth [Recovering/Resolving]
  - Asthenia [Recovering/Resolving]

NARRATIVE: CASE EVENT DATE: 20201015
